FAERS Safety Report 12456289 (Version 1)
Quarter: 2016Q2

REPORT INFORMATION
  Report Type: Spontaneous
  Country: US (occurrence: US)
  Receive Date: 20160610
  Receipt Date: 20160610
  Transmission Date: 20160815
  Serious: No
  Sender: FDA-Public Use
  Company Number: US-ELI_LILLY_AND_COMPANY-US201605005847

PATIENT
  Sex: Male
  Weight: 97.52 kg

DRUGS (3)
  1. DESVENLAFAXINA [Suspect]
     Active Substance: DESVENLAFAXINE
     Indication: BIPOLAR DISORDER
     Dosage: UNK
     Dates: start: 20160418
  2. KLONOPIN [Concomitant]
     Active Substance: CLONAZEPAM
     Indication: SLEEP DISORDER
  3. CYMBALTA [Suspect]
     Active Substance: DULOXETINE HYDROCHLORIDE
     Indication: BIPOLAR DISORDER

REACTIONS (5)
  - Drug ineffective [Unknown]
  - Crying [Unknown]
  - Depression [Unknown]
  - Off label use [Unknown]
  - Mental impairment [Unknown]
